FAERS Safety Report 5285449-X (Version None)
Quarter: 2007Q1

REPORT INFORMATION
  Report Type: 
  Country: None (occurrence: None)
  Receive Date: 20070328
  Receipt Date: 20070314
  Transmission Date: 20070707
  Serious: Yes (Hospitalization)
  Sender: FDA-Public Use
  Company Number: 2006US000613

PATIENT
  Age: 8 Year
  Sex: Female
  Weight: 22.6 kg

DRUGS (11)
  1. PROGRAF [Suspect]
     Indication: PROPHYLAXIS AGAINST TRANSPLANT REJECTION
     Dates: start: 20060314
  2. ZENAPAX [Suspect]
     Indication: RENAL TRANSPLANT
     Dosage: SEE IMAGE
     Route: 042
     Dates: start: 20060315, end: 20060315
  3. ZENAPAX [Suspect]
     Indication: RENAL TRANSPLANT
     Dosage: SEE IMAGE
     Route: 042
     Dates: start: 20060329, end: 20060329
  4. ZENAPAX [Suspect]
     Indication: RENAL TRANSPLANT
     Dosage: SEE IMAGE
     Route: 042
     Dates: start: 20060412, end: 20060412
  5. ZENAPAX [Suspect]
     Indication: RENAL TRANSPLANT
     Dosage: SEE IMAGE
     Route: 042
     Dates: start: 20060426, end: 20060426
  6. VALCYTE [Concomitant]
  7. ASPIRIN 10GR TIMED DISINTEGRATION TAB [Concomitant]
  8. SEPTRA [Concomitant]
  9. CLONIDINE [Concomitant]
  10. AMLODIPINE [Concomitant]
  11. PEPCID AC [Concomitant]

REACTIONS (3)
  - FAECALOMA [None]
  - INCISION SITE COMPLICATION [None]
  - PAIN [None]
